FAERS Safety Report 6066306-8 (Version None)
Quarter: 2009Q1

REPORT INFORMATION
  Report Type: 
  Country: None (occurrence: None)
  Receive Date: 20090205
  Receipt Date: 20090122
  Transmission Date: 20090719
  Serious: Yes (Other)
  Sender: FDA-Public Use
  Company Number: US-ELI_LILLY_AND_COMPANY-US200901003984

PATIENT
  Sex: Female

DRUGS (7)
  1. FORTEO [Suspect]
     Indication: OSTEOPOROSIS
     Dosage: 20 UG, DAILY (1/D)
     Dates: start: 20060526
  2. PRILOSEC [Concomitant]
     Dosage: UNK, 2/D
  3. LIPITOR [Concomitant]
     Dosage: 80 MG, DAILY (1/D)
  4. TRIMOX [Concomitant]
  5. CENTRUM SILVER [Concomitant]
     Dosage: UNK, DAILY (1/D)
  6. OSCAL [Concomitant]
     Dosage: UNK, DAILY (1/D)
  7. LEVOTHROID [Concomitant]
     Dosage: 70 UG, DAILY (1/D)

REACTIONS (5)
  - DENTAL CARIES [None]
  - DRUG INEFFECTIVE [None]
  - FALL [None]
  - HIP ARTHROPLASTY [None]
  - SPINAL DISORDER [None]
